FAERS Safety Report 4743578-0 (Version None)
Quarter: 2005Q3

REPORT INFORMATION
  Report Type: 
  Country: None (occurrence: None)
  Receive Date: 20050810
  Receipt Date: 20050810
  Transmission Date: 20060218
  Serious: Yes (Hospitalization)
  Sender: FDA-Public Use
  Company Number: None

PATIENT
  Age: 71 Year
  Sex: Male
  Weight: 135 kg

DRUGS (22)
  1. SPIRONOLACTONE [Suspect]
     Indication: HYPERTENSION
     Dosage: ONE PO DAILY
     Route: 048
     Dates: start: 20050405
  2. POTASSIUM CHLORIDE 10MEQ [Suspect]
     Indication: SUBSTITUTION THERAPY
     Dosage: THREE PO BID
     Route: 048
  3. ACETAMINOPHEN [Concomitant]
  4. COMBIVENT [Concomitant]
  5. CLOTRIMAZOLE [Concomitant]
  6. CYANOCOBALAMIN [Concomitant]
  7. DIGOXIN [Concomitant]
  8. DILTIAZEM [Concomitant]
  9. DOCUSATE [Concomitant]
  10. FERROUS SULFATE TAB [Concomitant]
  11. FLUNISOLIDE ORAL MDI [Concomitant]
  12. FLUNISOLIDE NASAL INHALER [Concomitant]
  13. FUROSEMIDE [Concomitant]
  14. GLYBURIDE [Concomitant]
  15. HYDRALAZINE [Concomitant]
  16. LISINOPRIL [Concomitant]
  17. METFORMIN HCL [Concomitant]
  18. METHADONE HCL [Concomitant]
  19. NORTRIPTYLINE HCL [Concomitant]
  20. PERCOCET [Concomitant]
  21. WARFARIN SODIUM [Concomitant]
  22. PRAZOSIN HCL [Concomitant]

REACTIONS (10)
  - ASTHENIA [None]
  - BLOOD GLUCOSE INCREASED [None]
  - BLOOD POTASSIUM INCREASED [None]
  - DIZZINESS [None]
  - DYSPNOEA [None]
  - HYPERTENSION [None]
  - LETHARGY [None]
  - NAUSEA [None]
  - SOMNOLENCE [None]
  - VISION BLURRED [None]
